FAERS Safety Report 18430273 (Version 2)
Quarter: 2020Q4

REPORT INFORMATION
  Report Type: Other
  Country: AE (occurrence: AE)
  Receive Date: 20201026
  Receipt Date: 20201130
  Transmission Date: 20210114
  Serious: Yes (Other)
  Sender: FDA-Public Use
  Company Number: AE-ROCHE-2702326

PATIENT
  Sex: Male

DRUGS (1)
  1. RANIBIZUMAB. [Suspect]
     Active Substance: RANIBIZUMAB
     Indication: RETINOPATHY OF PREMATURITY
     Route: 031

REACTIONS (2)
  - Retinopathy of prematurity [Recovered/Resolved]
  - Disease recurrence [Unknown]
